FAERS Safety Report 4878431-5 (Version None)
Quarter: 2005Q4

REPORT INFORMATION
  Report Type: 
  Country: None (occurrence: None)
  Receive Date: 20051209
  Receipt Date: 20050414
  Transmission Date: 20060501
  Serious: Yes (Death)
  Sender: FDA-Public Use
  Company Number: USA-2005-0019846

PATIENT
  Age: 25 Year
  Sex: Female
  Weight: 80.7403 kg

DRUGS (8)
  1. OXYCODONE HCL [Suspect]
     Dosage: UNK UNK, UNK, INHALATION
     Route: 055
  2. HYDROCODONE BITARTRATE [Suspect]
     Route: 065
  3. XANAX [Suspect]
     Route: 065
  4. PAXIL [Suspect]
     Route: 065
  5. ZYPREXA [Suspect]
     Route: 065
  6. OXYMORPHONE HYDROCHLORIDE [Suspect]
     Route: 065
  7. ALCOHOL (ETHANOL) [Suspect]
     Route: 065
  8. ETHANOL (ETHANOL) [Suspect]
     Route: 065

REACTIONS (3)
  - DRUG ABUSER [None]
  - LOSS OF CONSCIOUSNESS [None]
  - MULTIPLE DRUG OVERDOSE ACCIDENTAL [None]
